FAERS Safety Report 5328429-8 (Version None)
Quarter: 2007Q2

REPORT INFORMATION
  Report Type: 
  Country: None (occurrence: None)
  Receive Date: 20070518
  Receipt Date: 20070510
  Transmission Date: 20071010
  Serious: Yes (Other)
  Sender: FDA-Public Use
  Company Number: US-ASTRAZENECA-2007UW11231

PATIENT
  Age: 80 Year
  Sex: Female
  Weight: 68.9 kg

DRUGS (8)
  1. ARIMIDEX [Suspect]
     Indication: BREAST CANCER IN SITU
     Route: 048
  2. MONOKET [Concomitant]
  3. NITROGLYCERIN [Concomitant]
  4. ATENOLOL [Concomitant]
     Route: 048
  5. GEMFIBROZIL [Concomitant]
  6. LIPITOR [Concomitant]
  7. FOLIC ACID [Concomitant]
  8. VITAMIN [Concomitant]

REACTIONS (8)
  - ASTHENIA [None]
  - BACK PAIN [None]
  - FEELING COLD [None]
  - GAIT DISTURBANCE [None]
  - LUNG DISORDER [None]
  - LUNG NEOPLASM [None]
  - MOOD ALTERED [None]
  - PAIN [None]
